FAERS Safety Report 4285988-4 (Version None)
Quarter: 2004Q1

REPORT INFORMATION
  Report Type: 
  Country: None (occurrence: None)
  Receive Date: 20040203
  Receipt Date: 20040121
  Transmission Date: 20041129
  Serious: Yes (Hospitalization)
  Sender: FDA-Public Use
  Company Number: CAN-2002-003487

PATIENT
  Age: 46 Year
  Sex: Female

DRUGS (3)
  1. BETASERON [Suspect]
     Indication: MULTIPLE SCLEROSIS
     Dosage: 7.2 MIU, EVERY 2D, SUBCUTANEOUS
     Route: 058
     Dates: start: 19970915, end: 20020810
  2. TEGRETOL [Concomitant]
  3. BENADRYL [Concomitant]

REACTIONS (3)
  - ASTHENIA [None]
  - DYSPHAGIA [None]
  - RASH [None]
